FAERS Safety Report 7094588-2 (Version None)
Quarter: 2010Q4

REPORT INFORMATION
  Report Type: 
  Country: None (occurrence: None)
  Receive Date: 20101110
  Receipt Date: 20101101
  Transmission Date: 20110411
  Serious: Yes (Hospitalization, Other)
  Sender: FDA-Public Use
  Company Number: US-ROCHE-718980

PATIENT
  Sex: Male
  Weight: 44.5 kg

DRUGS (1)
  1. ACCUTANE [Suspect]
     Indication: ACNE
     Route: 065
     Dates: start: 20050201, end: 20050301

REACTIONS (5)
  - COLITIS ULCERATIVE [None]
  - DIZZINESS [None]
  - GASTROINTESTINAL INJURY [None]
  - HAEMORRHAGE [None]
  - VISION BLURRED [None]
